FAERS Safety Report 17105116 (Version 11)
Quarter: 2021Q4

REPORT INFORMATION
  Report Type: Spontaneous
  Country: JP (occurrence: JP)
  Receive Date: 20191203
  Receipt Date: 20211216
  Transmission Date: 20220304
  Serious: Yes (Hospitalization, Other)
  Sender: FDA-Public Use
  Company Number: JP-BRISTOL-MYERS SQUIBB COMPANY-BMS-2019-114418

PATIENT
  Age: 70 Year
  Sex: Male

DRUGS (5)
  1. OPDIVO [Suspect]
     Active Substance: NIVOLUMAB
     Indication: Metastatic renal cell carcinoma
     Dosage: 240 MILLIGRAM, Q3WK
     Route: 041
     Dates: start: 201901, end: 20191219
  2. YERVOY [Suspect]
     Active Substance: IPILIMUMAB
     Indication: Metastatic renal cell carcinoma
     Dosage: 50 MILLIGRAM, Q3WK
     Route: 041
     Dates: start: 201901, end: 201904
  3. CABOZANTINIB [Suspect]
     Active Substance: CABOZANTINIB
     Indication: Metastatic renal cell carcinoma
     Dosage: 20 MILLIGRAM
     Route: 065
     Dates: start: 202108
  4. CABOZANTINIB [Suspect]
     Active Substance: CABOZANTINIB
     Dosage: 40 MILLIGRAM
     Route: 065
     Dates: start: 202109
  5. CABOZANTINIB [Suspect]
     Active Substance: CABOZANTINIB
     Dosage: 20 MILLIGRAM
     Route: 065
     Dates: start: 202109

REACTIONS (6)
  - Hypopituitarism [Recovered/Resolved]
  - Adrenal insufficiency [Recovered/Resolved]
  - Rheumatoid arthritis [Recovered/Resolved]
  - Tremor [Recovering/Resolving]
  - Pulmonary mass [Unknown]
  - Palmar-plantar erythrodysaesthesia syndrome [Unknown]

NARRATIVE: CASE EVENT DATE: 20190604
